FAERS Safety Report 11841500 (Version 1)
Quarter: 2015Q4

REPORT INFORMATION
  Report Type: Report from Study
  Country: US (occurrence: US)
  Receive Date: 20151216
  Receipt Date: 20151216
  Transmission Date: 20160305
  Serious: Yes (Other)
  Sender: FDA-Public Use
  Company Number: US-MYLANLABS-2015M1043862

PATIENT
  Age: 23 Year
  Sex: Female

DRUGS (3)
  1. AMNESTEEM [Suspect]
     Active Substance: ISOTRETINOIN
     Dosage: UNK
     Dates: start: 201507, end: 2015
  2. ORAL CONTRACEPTIVE NOS [Concomitant]
     Active Substance: UNSPECIFIED INGREDIENT
     Indication: CONTRACEPTION
     Dosage: UNK
     Route: 065
  3. AMNESTEEM [Suspect]
     Active Substance: ISOTRETINOIN
     Dosage: 20 MG, QD
     Dates: start: 201510, end: 20151127

REACTIONS (1)
  - Exposure during pregnancy [Not Recovered/Not Resolved]

NARRATIVE: CASE EVENT DATE: 20151117
